FAERS Safety Report 12463157 (Version 4)
Quarter: 2020Q4

REPORT INFORMATION
  Report Type: Report from Study
  Country: US (occurrence: US)
  Receive Date: 20160614
  Receipt Date: 20201030
  Transmission Date: 20210113
  Serious: Yes (Hospitalization)
  Sender: FDA-Public Use
  Company Number: US-ROCHE-1771433

PATIENT
  Age: 47 Year
  Sex: Female
  Weight: 78.3 kg

DRUGS (6)
  1. DOCETAXEL. [Suspect]
     Active Substance: DOCETAXEL
     Indication: BREAST CANCER
     Dosage: CYCLE 1 DAY 1?CYCLE 2-6 DAY 1 RECEIVED ON 26 /FEB/2016 AND CYCLE 4 ON 08/APR/2016 (138MG)
     Route: 042
     Dates: start: 20160205
  2. PERTUZUMAB. [Suspect]
     Active Substance: PERTUZUMAB
     Indication: BREAST CANCER
     Dosage: CYCLE 1 DAY 1 ?LOADING DOSE
     Route: 042
     Dates: start: 20160205
  3. TRASTUZUMAB. [Suspect]
     Active Substance: TRASTUZUMAB
     Indication: BREAST CANCER
     Dosage: LOADING DOSE ON DAY 1 CYCLE 1
     Route: 042
     Dates: start: 20160205
  4. CARBOPLATIN. [Suspect]
     Active Substance: CARBOPLATIN
     Indication: BREAST CANCER
     Dosage: AUC=6 MG/ML/MIN IV OVER 30-60 MIN ON DAY 1 Q3 WEEKS?CYCLE 2-6 DAY 1 RECEIVED ON 26 /FEB/2016 AND CYC
     Route: 042
     Dates: start: 20160205
  5. PERTUZUMAB. [Suspect]
     Active Substance: PERTUZUMAB
     Dosage: CYCLE 2-6 DAY  1?MOST RECENT DOSE ADMINISTERED: 26/FEB/2016 AND 08/APR/2016 (CYCLE 4, 420 MG)?MAINTE
     Route: 042
  6. TRASTUZUMAB. [Suspect]
     Active Substance: TRASTUZUMAB
     Dosage: CYCLE 2-6 DAY 1?MAINTENANCE DOSE?MOST RECENT DOSE ADMINISTERED: 26/FEB/2016, 08/APR/2016 (CYCLE 4, 4
     Route: 042

REACTIONS (4)
  - Vomiting [Recovered/Resolved]
  - Hypokalaemia [Recovering/Resolving]
  - Enterocolitis infectious [Recovering/Resolving]
  - Nausea [Recovered/Resolved]

NARRATIVE: CASE EVENT DATE: 20160302
